FAERS Safety Report 22073267 (Version 1)
Quarter: 2023Q1

REPORT INFORMATION
  Report Type: Spontaneous
  Country: US (occurrence: US)
  Receive Date: 20230308
  Receipt Date: 20230308
  Transmission Date: 20230417
  Serious: Yes (Hospitalization, Other)
  Sender: FDA-Public Use
  Company Number: US-ADVANZ PHARMA-202302001539

PATIENT

DRUGS (1)
  1. HYDROXYCHLOROQUINE SULFATE [Suspect]
     Active Substance: HYDROXYCHLOROQUINE SULFATE
     Indication: Cytokine increased
     Dosage: 200 MG, QD
     Route: 048
     Dates: start: 20230202, end: 20230214

REACTIONS (5)
  - Acute generalised exanthematous pustulosis [Unknown]
  - Rash [Not Recovered/Not Resolved]
  - Pyrexia [Not Recovered/Not Resolved]
  - Product use in unapproved indication [Unknown]
  - Exposure during pregnancy [Unknown]

NARRATIVE: CASE EVENT DATE: 20230202
